FAERS Safety Report 4323258-6 (Version None)
Quarter: 2004Q1

REPORT INFORMATION
  Report Type: 
  Country: None (occurrence: None)
  Receive Date: 20040322
  Receipt Date: 20040311
  Transmission Date: 20041129
  Serious: Yes (Death, Hospitalization)
  Sender: FDA-Public Use
  Company Number: 2004201383DK

PATIENT
  Sex: Female
  Weight: 2.7 kg

DRUGS (3)
  1. MINPROSTIN (DINOPROSTONE) TABLET, VAGINAL [Suspect]
     Indication: INDUCED LABOUR
     Dosage: VAGINAL
     Route: 067
     Dates: start: 20030414, end: 20030414
  2. MINPROSTIN (DINOPROSTONE) TABLET, VAGINAL [Suspect]
     Indication: INDUCED LABOUR
     Dosage: VAGINAL
     Route: 067
     Dates: start: 20030414, end: 20030414
  3. METHYLDOPA [Concomitant]

REACTIONS (3)
  - CAESAREAN SECTION [None]
  - MATERNAL DRUGS AFFECTING FOETUS [None]
  - STILLBIRTH [None]
